FAERS Safety Report 12533929 (Version 1)
Quarter: 2016Q3

REPORT INFORMATION
  Report Type: Spontaneous
  Country: US (occurrence: US)
  Receive Date: 20160706
  Receipt Date: 20160706
  Transmission Date: 20161109
  Serious: Yes (Hospitalization)
  Sender: FDA-Public Use
  Company Number: US-NAPPMUNDI-USA-2016-0129762

PATIENT
  Age: 78 Year
  Sex: Female

DRUGS (1)
  1. BUTRANS [Suspect]
     Active Substance: BUPRENORPHINE
     Indication: ARTHRALGIA
     Dosage: 10 MCG/HR, WEEKLY
     Route: 062
     Dates: start: 20160227

REACTIONS (4)
  - Weight decreased [Unknown]
  - Unevaluable event [Unknown]
  - Dyspnoea [Unknown]
  - Heart rate increased [Unknown]

NARRATIVE: CASE EVENT DATE: 20160227
